FAERS Safety Report 8315049-6 (Version None)
Quarter: 2012Q2

REPORT INFORMATION
  Report Type: 
  Country: None (occurrence: None)
  Receive Date: 20120426
  Receipt Date: 20120420
  Transmission Date: 20120825
  Serious: Yes (Death, Other)
  Sender: FDA-Public Use
  Company Number: JP-JNJFOC-20111102466

PATIENT
  Sex: Female
  Weight: 59 kg

DRUGS (13)
  1. FENTANYL-100 [Suspect]
     Route: 062
     Dates: start: 20100930, end: 20101015
  2. GABAPENTIN [Concomitant]
     Indication: NEURALGIA
     Route: 048
  3. FENTANYL-100 [Suspect]
     Indication: CANCER PAIN
     Route: 062
     Dates: start: 20101003, end: 20101015
  4. FENTANYL-100 [Suspect]
     Route: 062
     Dates: start: 20100921, end: 20100924
  5. FENTANYL-100 [Suspect]
     Route: 062
     Dates: start: 20100930, end: 20101015
  6. FENTANYL-100 [Suspect]
     Indication: PROCEDURAL PAIN
     Route: 062
     Dates: start: 20101003, end: 20101015
  7. FENTANYL CITRATE [Concomitant]
     Route: 042
  8. FENTANYL-100 [Suspect]
     Route: 062
     Dates: start: 20100925, end: 20100927
  9. FENTANYL-100 [Suspect]
     Route: 062
     Dates: start: 20100925, end: 20100927
  10. FENTANYL-100 [Suspect]
     Route: 062
     Dates: start: 20100927, end: 20100930
  11. FENTANYL-100 [Suspect]
     Route: 062
     Dates: start: 20100921, end: 20100924
  12. FENTANYL-100 [Suspect]
     Route: 062
     Dates: start: 20100927, end: 20100930
  13. AMOXAPINE [Interacting]
     Indication: NEURALGIA
     Route: 048
     Dates: start: 20100927, end: 20101005

REACTIONS (3)
  - SEROTONIN SYNDROME [None]
  - DRUG INTERACTION [None]
  - DEATH [None]
